FAERS Safety Report 5809647-9 (Version None)
Quarter: 2008Q3

REPORT INFORMATION
  Report Type: 
  Country: None (occurrence: None)
  Receive Date: 20080715
  Receipt Date: 20080703
  Transmission Date: 20090109
  Serious: Yes (Disabling, Other)
  Sender: FDA-Public Use
  Company Number: NL-WYE-H04824808

PATIENT
  Sex: Female

DRUGS (4)
  1. PANTOPRAZOLE SODIUM [Suspect]
     Indication: GASTRITIS
     Dates: start: 20080516
  2. ISPAGHULA [Concomitant]
  3. PLANTAGO MAJOR [Concomitant]
  4. TRILEPTAL [Suspect]
     Indication: EPILEPSY
     Route: 048
     Dates: start: 20050204

REACTIONS (1)
  - PETIT MAL EPILEPSY [None]
